FAERS Safety Report 7378120-1 (Version None)
Quarter: 2011Q1

REPORT INFORMATION
  Report Type: 
  Country: None (occurrence: None)
  Receive Date: 20110328
  Receipt Date: 20110315
  Transmission Date: 20110831
  Serious: Yes (Hospitalization)
  Sender: FDA-Public Use
  Company Number: US-JNJFOC-20080903775

PATIENT
  Age: 19 Year
  Sex: Female

DRUGS (3)
  1. LAMOTRIGINE [Concomitant]
     Indication: BIPOLAR DISORDER
  2. DEXTROMETHORPHAN HYDROBROMIDE [Suspect]
     Indication: INTENTIONAL DRUG MISUSE
     Dosage: UNKNOWN
     Route: 065
  3. MINOCYCLINE HCL [Concomitant]
     Indication: ACNE

REACTIONS (6)
  - FLAT AFFECT [None]
  - NYSTAGMUS [None]
  - CONVULSION [None]
  - CONFUSIONAL STATE [None]
  - TACHYCARDIA [None]
  - DRUG ABUSE [None]
